FAERS Safety Report 9617482 (Version 2)
Quarter: 2013Q4

REPORT INFORMATION
  Report Type: Report from Study
  Country: DZ (occurrence: DZ)
  Receive Date: 20131011
  Receipt Date: 20131028
  Transmission Date: 20140711
  Serious: Yes (Other)
  Sender: FDA-Public Use
  Company Number: DZ-SHIRE-ALL1-2013-06971

PATIENT
  Age: 6 Year
  Sex: Male
  Weight: 31 kg

DRUGS (1)
  1. IDURSULFASE [Suspect]
     Indication: MUCOPOLYSACCHARIDOSIS II
     Dosage: 18 MG, UNKNOWN
     Route: 041
     Dates: start: 2010

REACTIONS (5)
  - Mental retardation [Unknown]
  - Arthropathy [Unknown]
  - Chills [Unknown]
  - Blood pressure decreased [Unknown]
  - Infusion related reaction [Unknown]
